FAERS Safety Report 8991964 (Version 1)
Quarter: 2012Q4

REPORT INFORMATION
  Report Type: 
  Country: JP (occurrence: JP)
  Receive Date: 20121231
  Receipt Date: 20121231
  Transmission Date: 20130627
  Serious: Yes (Other)
  Sender: FDA-Public Use
  Company Number: JP-ASTELLAS-2012JP003332

PATIENT
  Age: 74 Year
  Sex: Male
  Weight: 59.5 kg

DRUGS (11)
  1. BETANIS [Suspect]
     Indication: BENIGN PROSTATIC HYPERPLASIA
     Dosage: 25 mg, UID/QD
     Route: 048
     Dates: start: 20120202, end: 20120314
  2. TAKEPRON [Concomitant]
     Indication: GASTROOESOPHAGEAL REFLUX DISEASE
     Dosage: 15 mg, UID/QD
     Route: 048
     Dates: start: 20100302
  3. ZETIA [Concomitant]
     Indication: HYPERLIPIDAEMIA
     Dosage: 10 mg, UID/QD
     Route: 048
     Dates: start: 20071015
  4. NORVASC [Concomitant]
     Indication: HYPERTENSION
     Dosage: 5 mg, UID/QD
     Route: 048
     Dates: start: 20090122
  5. BASEN [Concomitant]
     Indication: DIABETES MELLITUS
     Dosage: 0.2 mg, bid
     Route: 048
     Dates: start: 20090430
  6. TALION [Concomitant]
     Indication: RASH
     Dosage: 10 mg, UID/QD
     Route: 048
  7. ADONA [Concomitant]
     Indication: RASH
     Dosage: 30 mg, bid
     Route: 048
     Dates: start: 20120126
  8. BEAUCY [Concomitant]
     Indication: RASH
     Dosage: 1 g, tid
     Route: 048
  9. VENAPASTA [Concomitant]
     Indication: RASH
     Dosage: UNK
     Route: 061
  10. TOPSYM [Concomitant]
     Indication: RASH
     Dosage: UNK
     Route: 061
  11. URIEF [Concomitant]
     Indication: BENIGN PROSTATIC HYPERPLASIA
     Dosage: 4 mg, bid
     Route: 048
     Dates: start: 20080501

REACTIONS (1)
  - Gastroenteritis eosinophilic [Recovering/Resolving]
